FAERS Safety Report 18089507 (Version 2)
Quarter: 2020Q3

REPORT INFORMATION
  Report Type: Spontaneous
  Country: DE (occurrence: DE)
  Receive Date: 20200730
  Receipt Date: 20200811
  Transmission Date: 20201103
  Serious: Yes (Other)
  Sender: FDA-Public Use
  Company Number: DE-AUROBINDO-AUR-APL-2020-035803

PATIENT
  Age: 53 Year
  Sex: Female

DRUGS (3)
  1. MOXIFLOXACIN 400MG, FILM?COATED TABLETS [Suspect]
     Active Substance: MOXIFLOXACIN
     Indication: SINUSITIS
     Dosage: 400 MILLIGRAM, ONCE A DAY ( PER OS)
     Route: 048
     Dates: start: 2018
  2. MOXIFLOXACIN 400MG, FILM?COATED TABLETS [Suspect]
     Active Substance: MOXIFLOXACIN
     Indication: UPPER RESPIRATORY TRACT INFECTION
  3. ACETYLSALICYLIC ACID [Concomitant]
     Active Substance: ASPIRIN
     Indication: PROPHYLAXIS
     Dosage: 100 MILLIGRAM, DAILY
     Route: 048

REACTIONS (1)
  - Iris transillumination defect [Unknown]

NARRATIVE: CASE EVENT DATE: 2018
